FAERS Safety Report 18573944 (Version 3)
Quarter: 2021Q1

REPORT INFORMATION
  Report Type: Spontaneous
  Country: US (occurrence: US)
  Receive Date: 20201203
  Receipt Date: 20210213
  Transmission Date: 20210419
  Serious: No
  Sender: FDA-Public Use
  Company Number: US-TEVA-2020-US-1855743

PATIENT
  Sex: Female

DRUGS (18)
  1. BREO ELLIPTA [Concomitant]
     Active Substance: FLUTICASONE FUROATE\VILANTEROL TRIFENATATE
  2. TYLENOL EXTRA STRENGTH [Concomitant]
     Active Substance: ACETAMINOPHEN
  3. PROMETHAZINE VC [Concomitant]
     Active Substance: PHENYLEPHRINE HYDROCHLORIDE\PROMETHAZINE HYDROCHLORIDE
  4. DECADRON [Concomitant]
     Active Substance: DEXAMETHASONE
  5. LISINOPRIL/HCTZ [Concomitant]
     Active Substance: HYDROCHLOROTHIAZIDE\LISINOPRIL
  6. COMPAZINE [Concomitant]
     Active Substance: PROCHLORPERAZINE MALEATE
  7. LISINOPRIL. [Concomitant]
     Active Substance: LISINOPRIL
  8. SPRYCEL [Concomitant]
     Active Substance: DASATINIB
  9. LORATADIN [Concomitant]
     Active Substance: LORATADINE
  10. SYNRIBO [Suspect]
     Active Substance: OMACETAXINE MEPESUCCINATE
     Indication: CHRONIC MYELOID LEUKAEMIA
     Dosage: 2.5 MILLIGRAM DAILY; 1XDAILY FOR 7 DAYS OF 28 DAY CYCLE
     Route: 058
     Dates: start: 20201019
  11. DULOXETINE HYDROCHLORIDE. [Concomitant]
     Active Substance: DULOXETINE HYDROCHLORIDE
  12. ZOFRAN [Concomitant]
     Active Substance: ONDANSETRON HYDROCHLORIDE
  13. TYLENOL WITH CODEINE [Concomitant]
     Active Substance: ACETAMINOPHEN\CODEINE PHOSPHATE
  14. VENTOLIN [Concomitant]
     Active Substance: ALBUTEROL SULFATE
  15. LORAZEPAM. [Concomitant]
     Active Substance: LORAZEPAM
  16. BACLOFEN. [Concomitant]
     Active Substance: BACLOFEN
  17. PROCHLORPERAZINE. [Concomitant]
     Active Substance: PROCHLORPERAZINE
  18. POTASSIUM CHLORIDE. [Concomitant]
     Active Substance: POTASSIUM CHLORIDE

REACTIONS (5)
  - Vaginal haemorrhage [Unknown]
  - Injection site swelling [Unknown]
  - Injection site erythema [Unknown]
  - Bacterial infection [Unknown]
  - Injection site pain [Unknown]
